FAERS Safety Report 5726688-0 (Version None)
Quarter: 2008Q2

REPORT INFORMATION
  Report Type: 
  Country: None (occurrence: None)
  Receive Date: 20080502
  Receipt Date: 20080423
  Transmission Date: 20081010
  Serious: Yes (Hospitalization)
  Sender: FDA-Public Use
  Company Number: US-WYE-H03802808

PATIENT
  Sex: Male
  Weight: 78.09 kg

DRUGS (7)
  1. TORISEL [Suspect]
     Indication: RENAL CELL CARCINOMA
     Route: 065
     Dates: start: 20080201
  2. ZOSYN [Concomitant]
  3. DURAGESIC-100 [Concomitant]
     Indication: PAIN
     Dosage: 50 MCG - FREQUENCY NOT SPECIFIED
     Route: 061
     Dates: start: 20080229, end: 20080307
  4. DURAGESIC-100 [Concomitant]
     Dosage: 100 MCG - FREQUENCY NOT SPECIFIED
     Route: 061
     Dates: start: 20080307
  5. ATIVAN [Concomitant]
     Indication: INSOMNIA
  6. PROCRIT [Concomitant]
     Dosage: UNKNOWN
     Route: 058
  7. LORTAB [Concomitant]

REACTIONS (1)
  - DELIRIUM [None]
